FAERS Safety Report 10376567 (Version 2)
Quarter: 2014Q3

REPORT INFORMATION
  Report Type: Spontaneous
  Country: US (occurrence: None)
  Receive Date: 20140807
  Receipt Date: 20140808
  Transmission Date: 20150326
  Serious: Yes (Congenital Anomaly, Other)
  Sender: FDA-Public Use
  Company Number: 2014AP003798

PATIENT
  Age: 0 Day
  Sex: Male

DRUGS (6)
  1. ESTRADIOL VALERATE (ESTRADIOL VALERATE) [Concomitant]
     Active Substance: ESTRADIOL VALERATE
  2. PAROXETINE HYDROCHLORIDE. [Suspect]
     Active Substance: PAROXETINE HYDROCHLORIDE
     Indication: FOETAL EXPOSURE DURING PREGNANCY
     Route: 064
     Dates: start: 20030129, end: 20140608
  3. PAXIL [Suspect]
     Active Substance: PAROXETINE HYDROCHLORIDE
     Indication: FOETAL EXPOSURE DURING PREGNANCY
     Route: 064
     Dates: start: 2002
  4. DELESTROGEN (ESTRADIOL VALERATE) [Concomitant]
  5. ASPIRIN (ACETYLSALICYLIC ACID) [Concomitant]
     Active Substance: ASPIRIN
  6. PROGESTERONE (PROGESTERONE) [Concomitant]

REACTIONS (2)
  - Maternal drugs affecting foetus [None]
  - Talipes [None]

NARRATIVE: CASE EVENT DATE: 20040630
